FAERS Safety Report 8144053-6 (Version None)
Quarter: 2012Q1

REPORT INFORMATION
  Report Type: 
  Country: None (occurrence: None)
  Receive Date: 20120217
  Receipt Date: 20120217
  Transmission Date: 20120608
  Serious: Yes (Hospitalization, Other)
  Sender: FDA-Public Use
  Company Number: None

PATIENT
  Age: 29 Year
  Sex: Male
  Weight: 86.182 kg

DRUGS (2)
  1. ACETAMINOPHEN [Concomitant]
  2. LEVOFLOXACIN [Suspect]
     Indication: OTITIS EXTERNA
     Route: 048
     Dates: start: 20120216, end: 20120216

REACTIONS (6)
  - CHEST PAIN [None]
  - CONFUSIONAL STATE [None]
  - DYSPNOEA [None]
  - DYSPHONIA [None]
  - ANXIETY [None]
  - OROPHARYNGEAL PAIN [None]
